FAERS Safety Report 5809349-9 (Version None)
Quarter: 2008Q3

REPORT INFORMATION
  Report Type: 
  Country: None (occurrence: None)
  Receive Date: 20080714
  Receipt Date: 20080703
  Transmission Date: 20090109
  Serious: Yes (Other)
  Sender: FDA-Public Use
  Company Number: PHHY2008JP12757

PATIENT
  Sex: Female
  Weight: 53 kg

DRUGS (5)
  1. ZOMETA [Suspect]
     Indication: METASTASES TO BONE
     Dosage: 4 MG, QMO
     Route: 042
     Dates: start: 20060501, end: 20080318
  2. AREDIA [Suspect]
     Indication: METASTASES TO BONE
     Dosage: 90 MG, UNK
     Dates: start: 20051003, end: 20060405
  3. FOSAMAX [Suspect]
     Indication: OSTEOPOROSIS
     Dosage: 35 MG, UNK
     Route: 048
     Dates: start: 20070911, end: 20080415
  4. PACLITAXEL [Suspect]
     Indication: METASTASES TO LUNG
     Dosage: 125 MG, UNK
     Route: 042
     Dates: start: 20041116, end: 20050720
  5. HERCEPTIN [Suspect]
     Indication: METASTASES TO LUNG
     Dosage: 114 MG, UNK
     Route: 042
     Dates: start: 20041124

REACTIONS (3)
  - ABSCESS [None]
  - OSTEONECROSIS [None]
  - TOOTH EXTRACTION [None]
